FAERS Safety Report 8922801 (Version 2)
Quarter: 2012Q4

REPORT INFORMATION
  Report Type: 
  Country: JP (occurrence: JP)
  Receive Date: 20121123
  Receipt Date: 20121226
  Transmission Date: 20130627
  Serious: Yes (Hospitalization, Other)
  Sender: FDA-Public Use
  Company Number: PHHY2012JP105048

PATIENT
  Age: 72 Year
  Sex: Male
  Weight: 48.4 kg

DRUGS (3)
  1. LANSOPRAZOLE [Suspect]
     Indication: HELICOBACTER INFECTION
     Dosage: 60 mg, QD
     Dates: start: 200901
  2. AMOXICILLIN [Concomitant]
     Indication: HELICOBACTER INFECTION
     Dosage: UNK
     Dates: start: 200901
  3. CLARITHROMYCIN [Concomitant]
     Indication: HELICOBACTER INFECTION
     Dosage: UNK
     Dates: start: 200901

REACTIONS (4)
  - Inappropriate antidiuretic hormone secretion [Recovered/Resolved]
  - Disorientation [Recovered/Resolved]
  - Muscular weakness [Recovered/Resolved]
  - Dizziness [Recovered/Resolved]
